FAERS Safety Report 24667227 (Version 1)
Quarter: 2024Q4

REPORT INFORMATION
  Report Type: Spontaneous
  Country: FR (occurrence: FR)
  Receive Date: 20241126
  Receipt Date: 20241126
  Transmission Date: 20250115
  Serious: Yes (Hospitalization)
  Sender: MYLAN
  Company Number: None

PATIENT
  Age: 33 Year
  Sex: Male

DRUGS (4)
  1. IRBESARTAN [Suspect]
     Active Substance: IRBESARTAN
     Indication: Product used for unknown indication
     Dosage: 750 MILLIGRAM, 1 TOTAL (10 TABS X 75 MG)
     Route: 048
     Dates: start: 20240929, end: 20240929
  2. SILDENAFIL [Suspect]
     Active Substance: SILDENAFIL
     Indication: Product used for unknown indication
     Dosage: 250 MILLIGRAM,1 TOTAL (5 TABS X 50 MG)
     Route: 048
     Dates: start: 20240929, end: 20240929
  3. IBUPROFEN [Suspect]
     Active Substance: IBUPROFEN
     Indication: Product used for unknown indication
     Dosage: 4800 MILLIGRAM, TOTAL (12 TABS X 400 MG)
     Route: 048
     Dates: start: 20240929, end: 20240929
  4. NICARDIPINE HYDROCHLORIDE [Suspect]
     Active Substance: NICARDIPINE HYDROCHLORIDE
     Indication: Product used for unknown indication
     Dosage: 31 DOSAGE FORM, 1 TOTAL
     Route: 048
     Dates: start: 20240929, end: 20240929

REACTIONS (3)
  - Poisoning deliberate [Recovered/Resolved]
  - Hypotension [Recovered/Resolved]
  - Intentional overdose [Unknown]

NARRATIVE: CASE EVENT DATE: 20240929
